FAERS Safety Report 17823904 (Version 3)
Quarter: 2020Q4

REPORT INFORMATION
  Report Type: Report from Study
  Country: SI (occurrence: SI)
  Receive Date: 20200526
  Receipt Date: 20201126
  Transmission Date: 20210113
  Serious: Yes (Other)
  Sender: FDA-Public Use
  Company Number: SI-TAKEDA-2020TUS023439

PATIENT
  Age: 59 Year
  Sex: Female

DRUGS (3)
  1. EMOZUL [Concomitant]
     Active Substance: ESOMEPRAZOLE MAGNESIUM
     Dosage: UNK
  2. VEDOLIZUMAB [Suspect]
     Active Substance: VEDOLIZUMAB
     Indication: CROHN^S DISEASE
     Dosage: 300 MILLIGRAM, Q4WEEKS
     Route: 042
     Dates: start: 201807, end: 202008
  3. BLOXAN [Concomitant]
     Active Substance: METOPROLOL TARTRATE
     Dosage: UNK

REACTIONS (4)
  - Computerised tomogram liver abnormal [Unknown]
  - Breast cancer [Unknown]
  - Drug ineffective [Unknown]
  - Metabolic surgery [Unknown]

NARRATIVE: CASE EVENT DATE: 201902
